FAERS Safety Report 8494968 (Version 3)
Quarter: 2013Q2

REPORT INFORMATION
  Report Type: Spontaneous
  Country: US (occurrence: US)
  Receive Date: 20120405
  Receipt Date: 20130614
  Transmission Date: 20140414
  Serious: No
  Sender: FDA-Public Use
  Company Number: US-PFIZER INC-2012081579

PATIENT
  Age: 88 Year
  Sex: Female

DRUGS (4)
  1. EPINEPHRINE [Suspect]
     Dosage: UNK
  2. EXCEDRIN (ASPIRIN/CAFFEINE/PARACETAMOL) [Suspect]
     Dosage: UNK
  3. KEFLEX [Suspect]
     Dosage: UNK
  4. DEMEROL [Suspect]
     Dosage: UNK

REACTIONS (1)
  - Drug hypersensitivity [Unknown]
